FAERS Safety Report 6185759-8 (Version None)
Quarter: 2009Q2

REPORT INFORMATION
  Report Type: 
  Country: None (occurrence: None)
  Receive Date: 20090511
  Receipt Date: 20090430
  Transmission Date: 20091009
  Serious: Yes (Hospitalization)
  Sender: FDA-Public Use
  Company Number: US-BIOGENIDEC-2009BI013404

PATIENT
  Age: 65 Year
  Sex: Female

DRUGS (1)
  1. TYSABRI [Suspect]
     Indication: MULTIPLE SCLEROSIS
     Route: 042
     Dates: start: 20070416

REACTIONS (6)
  - ABNORMAL BEHAVIOUR [None]
  - BACK INJURY [None]
  - DYSARTHRIA [None]
  - FALL [None]
  - LETHARGY [None]
  - SKIN DISCOLOURATION [None]
